FAERS Safety Report 4952752-X (Version None)
Quarter: 2006Q1

REPORT INFORMATION
  Report Type: 
  Country: None (occurrence: None)
  Receive Date: 20060324
  Receipt Date: 20060315
  Transmission Date: 20060701
  Serious: Yes (Hospitalization)
  Sender: FDA-Public Use
  Company Number: IT-JNJFOC-20060303056

PATIENT
  Age: 1 Decade
  Sex: Male

DRUGS (3)
  1. REMICADE [Suspect]
     Indication: CROHN'S DISEASE
     Route: 042
  2. AZATHIOPRINE [Suspect]
     Indication: DRUG USE FOR UNKNOWN INDICATION
     Route: 065
  3. STEROIDS [Concomitant]
     Dosage: 3 CYCLES

REACTIONS (3)
  - PANCREATITIS [None]
  - RENAL FAILURE [None]
  - VISUAL ACUITY REDUCED [None]
